FAERS Safety Report 5248421-1 (Version None)
Quarter: 2007Q1

REPORT INFORMATION
  Report Type: 
  Country: None (occurrence: None)
  Receive Date: 20070222
  Receipt Date: 20070209
  Transmission Date: 20070707
  Serious: Yes (Other)
  Sender: FDA-Public Use
  Company Number: 2007306509

PATIENT
  Age: 81 Year
  Sex: Female
  Weight: 48.1 kg

DRUGS (4)
  1. ROGAINE [Suspect]
     Indication: ALOPECIA
     Dosage: 1 ML TWICE DAILY (1 ML, 2 IN 1 D), TOPICAL
     Route: 061
     Dates: start: 19920101
  2. QVAR [Suspect]
     Indication: ASTHMA
     Dosage: 1 ^HIT^ AS NEEDED (80 MG), INHALATION
     Route: 055
     Dates: start: 20060101
  3. ADVAIR DISKUS 100/50 [Suspect]
     Dosage: ABOUT 12 TIMES A YEAR, INHALATION
     Route: 055
     Dates: start: 20060101
  4. MULTI-VITAMINS [Suspect]

REACTIONS (1)
  - NON-HODGKIN'S LYMPHOMA [None]
